FAERS Safety Report 25883314 (Version 2)
Quarter: 2025Q4

REPORT INFORMATION
  Report Type: Spontaneous
  Country: US (occurrence: US)
  Receive Date: 20251006
  Receipt Date: 20251219
  Transmission Date: 20260117
  Serious: No
  Sender: ELI LILLY AND COMPANY
  Company Number: US-ELI_LILLY_AND_COMPANY-US202509026885

PATIENT
  Age: 75 Year
  Sex: Male
  Weight: 83.6 kg

DRUGS (12)
  1. KISUNLA [Suspect]
     Active Substance: DONANEMAB-AZBT
     Indication: Dementia Alzheimer^s type
     Dosage: UNK, OTHER (EVERY 28 DAYS)
     Route: 042
     Dates: start: 20241014
  2. KISUNLA [Suspect]
     Active Substance: DONANEMAB-AZBT
     Dosage: UNK, OTHER (EVERY 28 DAYS)
     Route: 042
     Dates: start: 20241111
  3. KISUNLA [Suspect]
     Active Substance: DONANEMAB-AZBT
     Dosage: UNK, OTHER (EVERY 28 DAYS)
     Route: 042
     Dates: start: 20241209
  4. KISUNLA [Suspect]
     Active Substance: DONANEMAB-AZBT
     Dosage: UNK, OTHER (EVERY 28 DAYS)
     Route: 042
     Dates: start: 20250104
  5. KISUNLA [Suspect]
     Active Substance: DONANEMAB-AZBT
     Dosage: UNK, OTHER (EVERY 28 DAYS)
     Route: 042
     Dates: start: 20250204
  6. KISUNLA [Suspect]
     Active Substance: DONANEMAB-AZBT
     Dosage: UNK, OTHER (EVERY 28 DAYS)
     Route: 042
     Dates: start: 20250304
  7. KISUNLA [Suspect]
     Active Substance: DONANEMAB-AZBT
     Dosage: UNK, OTHER (EVERY 28 DAYS)
     Route: 042
     Dates: start: 20250401
  8. KISUNLA [Suspect]
     Active Substance: DONANEMAB-AZBT
     Dosage: UNK, OTHER (EVERY 28 DAYS)
     Route: 042
     Dates: start: 20250429
  9. KISUNLA [Suspect]
     Active Substance: DONANEMAB-AZBT
     Dosage: UNK, OTHER (EVERY 28 DAYS)
     Route: 042
     Dates: start: 20250527
  10. KISUNLA [Suspect]
     Active Substance: DONANEMAB-AZBT
     Dosage: UNK, OTHER (EVERY 28 DAYS)
     Route: 042
     Dates: start: 20250624
  11. KISUNLA [Suspect]
     Active Substance: DONANEMAB-AZBT
     Dosage: UNK, OTHER (EVERY 28 DAYS)
     Route: 042
     Dates: start: 20250722
  12. KISUNLA [Suspect]
     Active Substance: DONANEMAB-AZBT
     Dosage: UNK, OTHER (EVERY 28 DAYS)
     Route: 042
     Dates: start: 20250819

REACTIONS (1)
  - Amyloid related imaging abnormality-microhaemorrhages and haemosiderin deposits [Not Recovered/Not Resolved]
